FAERS Safety Report 10662543 (Version 2)
Quarter: 2015Q1

REPORT INFORMATION
  Report Type: Spontaneous
  Country: US (occurrence: US)
  Receive Date: 20141218
  Receipt Date: 20150102
  Transmission Date: 20150720
  Serious: Yes (Disabling)
  Sender: FDA-Public Use
  Company Number: US-SA-2014SA171209

PATIENT
  Age: 54 Year
  Sex: Male

DRUGS (1)
  1. LANTUS SOLOSTAR [Suspect]
     Active Substance: INSULIN GLARGINE
     Indication: DIABETES MELLITUS
     Dosage: DOSE/DAILY DOSE: 80 (UNITS NOT SPECIFIED)
     Route: 065
     Dates: start: 20000510

REACTIONS (2)
  - Accident [Unknown]
  - Spinal column injury [Unknown]

NARRATIVE: CASE EVENT DATE: 20110805
